FAERS Safety Report 5832357-9 (Version None)
Quarter: 2008Q3

REPORT INFORMATION
  Report Type: 
  Country: None (occurrence: None)
  Receive Date: 20080731
  Receipt Date: 20080731
  Transmission Date: 20090109
  Serious: Yes (Other)
  Sender: FDA-Public Use
  Company Number: None

PATIENT
  Age: 38 Year
  Sex: Female
  Weight: 65.7716 kg

DRUGS (4)
  1. LEVAQUIN [Suspect]
     Indication: PNEUMONIA
     Dosage: 500MG EVERY 24 HOURS IV
     Route: 042
     Dates: start: 20070105, end: 20070110
  2. LEVAQUIN [Suspect]
     Indication: URINARY TRACT INFECTION
     Dosage: 500MG EVERY 24 HOURS IV
     Route: 042
     Dates: start: 20070105, end: 20070110
  3. LEVAQUIN [Suspect]
     Indication: PNEUMONIA
     Dosage: 500MG EVERY 24 HOURS PO
     Route: 048
     Dates: start: 20070110, end: 20070117
  4. LEVAQUIN [Suspect]
     Indication: URINARY TRACT INFECTION
     Dosage: 500MG EVERY 24 HOURS PO
     Route: 048
     Dates: start: 20070110, end: 20070117

REACTIONS (2)
  - HEADACHE [None]
  - MUSCLE STRAIN [None]
